FAERS Safety Report 21070123 (Version 1)
Quarter: 2022Q3

REPORT INFORMATION
  Report Type: Spontaneous
  Country: US (occurrence: US)
  Receive Date: 20220712
  Receipt Date: 20220712
  Transmission Date: 20221027
  Serious: No
  Sender: FDA-Public Use
  Company Number: US-PFIZER INC-202200944781

PATIENT
  Age: 30 Year
  Sex: Female
  Weight: 83.91 kg

DRUGS (1)
  1. PAXLOVID [Suspect]
     Active Substance: NIRMATRELVIR\RITONAVIR
     Indication: COVID-19 treatment
     Dosage: RITONAVIR TABLET TWICE A DAY AND IT WAS 100MG AND THEN THE NIRMATRELVIR 150MG, 4 TIMES A DAY
     Dates: start: 202207

REACTIONS (3)
  - Pharyngeal mass [Unknown]
  - Dizziness [Unknown]
  - Off label use [Unknown]

NARRATIVE: CASE EVENT DATE: 20220701
